FAERS Safety Report 24987807 (Version 1)
Quarter: 2025Q1

REPORT INFORMATION
  Report Type: Report from Study
  Country: US (occurrence: US)
  Receive Date: 20250219
  Receipt Date: 20250219
  Transmission Date: 20250409
  Serious: Yes (Hospitalization)
  Sender: ARDELYX
  Company Number: US-ARDELYX-2025ARDX001000

PATIENT
  Sex: Female

DRUGS (2)
  1. XPHOZAH [Suspect]
     Active Substance: TENAPANOR HYDROCHLORIDE
     Indication: Hyperphosphataemia
     Route: 065
     Dates: start: 20240614
  2. SEVELAMER [Concomitant]
     Active Substance: SEVELAMER
     Indication: Product used for unknown indication
     Route: 065

REACTIONS (1)
  - Hospitalisation [Unknown]

NARRATIVE: CASE EVENT DATE: 20250201
